FAERS Safety Report 5495853-2 (Version None)
Quarter: 2007Q4

REPORT INFORMATION
  Report Type: 
  Country: None (occurrence: None)
  Receive Date: 20071025
  Receipt Date: 20061101
  Transmission Date: 20080405
  Serious: No
  Sender: FDA-Public Use
  Company Number: A0625856A

PATIENT
  Age: 30 Year
  Sex: Female

DRUGS (5)
  1. ADVAIR DISKUS 100/50 [Suspect]
     Indication: ASTHMA
     Dosage: 1PUFF TWICE PER DAY
     Route: 055
     Dates: start: 20060101
  2. NASONEX [Concomitant]
  3. ZYRTEC-D [Concomitant]
  4. COUMADIN [Concomitant]
  5. BIRTH CONTROL [Concomitant]

REACTIONS (1)
  - CANDIDIASIS [None]
